FAERS Safety Report 5479638-9 (Version None)
Quarter: 2007Q4

REPORT INFORMATION
  Report Type: 
  Country: None (occurrence: None)
  Receive Date: 20071008
  Receipt Date: 20071002
  Transmission Date: 20080405
  Serious: Yes (Hospitalization)
  Sender: FDA-Public Use
  Company Number: A0685655A

PATIENT
  Age: 58 Year
  Sex: Female

DRUGS (26)
  1. MEPRON [Suspect]
     Dosage: 10ML PER DAY
     Route: 048
     Dates: start: 20070629
  2. ACCOLATE [Concomitant]
  3. ALLEGRA [Concomitant]
  4. EFFEXOR [Concomitant]
  5. TOPAMAX [Concomitant]
  6. COZAAR [Concomitant]
  7. ZETIA [Concomitant]
  8. DARVOCET [Concomitant]
  9. BENTYL [Concomitant]
  10. LASIX [Concomitant]
  11. ZEBETA [Concomitant]
  12. PLAVIX [Concomitant]
  13. COMBIVENT [Concomitant]
  14. PATANOL [Concomitant]
  15. NEXIUM [Concomitant]
  16. IMIPRAMINE [Concomitant]
  17. AMBIEN [Concomitant]
  18. VALTREX [Concomitant]
  19. COMPAZINE [Concomitant]
  20. KYTRIL [Concomitant]
  21. CHROMIUM [Concomitant]
  22. FLAX SEED OIL [Concomitant]
  23. CALCIUM [Concomitant]
  24. VITAMIN B-12 [Concomitant]
  25. UNSPECIFIED MEDICATION [Concomitant]
  26. CHEMOTHERAPY [Concomitant]

REACTIONS (1)
  - HEPATIC STEATOSIS [None]
